FAERS Safety Report 5223741-5 (Version None)
Quarter: 2007Q1

REPORT INFORMATION
  Report Type: 
  Country: None (occurrence: None)
  Receive Date: 20070130
  Receipt Date: 20070116
  Transmission Date: 20070707
  Serious: Yes (Hospitalization)
  Sender: FDA-Public Use
  Company Number: 2007PK00102

PATIENT
  Age: 47 Year
  Sex: Female

DRUGS (16)
  1. SEROQUEL [Suspect]
     Indication: SCHIZOAFFECTIVE DISORDER
     Route: 048
     Dates: end: 20061112
  2. DEPAKENE [Interacting]
     Indication: SCHIZOAFFECTIVE DISORDER
     Dates: start: 20060914, end: 20060915
  3. DEPAKENE [Interacting]
     Dates: start: 20060915, end: 20060916
  4. DEPAKENE [Interacting]
     Dates: start: 20060916, end: 20060917
  5. DEPAKENE [Interacting]
     Dates: start: 20060917, end: 20060921
  6. DEPAKENE [Interacting]
     Dates: start: 20060921, end: 20061015
  7. DEPAKENE [Interacting]
     Dates: start: 20061016, end: 20061017
  8. DEPAKENE [Interacting]
     Dates: start: 20061017, end: 20061108
  9. DEPAKENE [Interacting]
     Dates: start: 20061109, end: 20061112
  10. DEPAKENE [Interacting]
     Dates: start: 20061113
  11. NOZINAN [Concomitant]
     Dates: start: 20060922, end: 20061112
  12. DITROPAN [Concomitant]
     Dates: end: 20061112
  13. THROMBO ASS [Concomitant]
     Dates: end: 20061112
  14. AEROCORTIN 100 UG [Concomitant]
     Dosage: TWO INHALATIONS BID
  15. BERODUAL [Concomitant]
     Dosage: TWO INHALATIONS BID
  16. HALDOL [Concomitant]
     Route: 030
     Dates: end: 20061025

REACTIONS (2)
  - DRUG INTERACTION [None]
  - PANCREATITIS ACUTE [None]
